FAERS Safety Report 24407511 (Version 1)
Quarter: 2024Q4

REPORT INFORMATION
  Report Type: Spontaneous
  Country: BR (occurrence: BR)
  Receive Date: 20241007
  Receipt Date: 20241007
  Transmission Date: 20250115
  Serious: Yes (Other)
  Sender: JOHNSON AND JOHNSON
  Company Number: BR-JNJFOC-20240974853

PATIENT
  Sex: Male

DRUGS (4)
  1. ERLEADA [Suspect]
     Active Substance: APALUTAMIDE
     Indication: Prostate cancer
     Route: 048
     Dates: start: 20230401
  2. LOSARTAN [Concomitant]
     Active Substance: LOSARTAN
  3. ATENOLOL [Concomitant]
     Active Substance: ATENOLOL
  4. GOSERELIN [Concomitant]
     Active Substance: GOSERELIN
     Dosage: EVERY 3 MONTHS

REACTIONS (3)
  - Haemorrhoids [Unknown]
  - Eating disorder [Unknown]
  - Nausea [Unknown]
